FAERS Safety Report 8386563-2 (Version None)
Quarter: 2012Q2

REPORT INFORMATION
  Report Type: 
  Country: None (occurrence: None)
  Receive Date: 20120525
  Receipt Date: 20110808
  Transmission Date: 20120825
  Serious: No
  Sender: FDA-Public Use
  Company Number: US-GLAXOSMITHKLINE-A0940612A

PATIENT
  Age: 67 Year
  Sex: Female

DRUGS (3)
  1. REFRESH TEARS [Suspect]
     Indication: DRY EYE
     Route: 065
  2. ALLEGRA [Concomitant]
  3. VERAMYST [Suspect]
     Indication: DRY EYE
     Route: 065

REACTIONS (1)
  - DRUG INEFFECTIVE [None]
